FAERS Safety Report 17333501 (Version 3)
Quarter: 2021Q3

REPORT INFORMATION
  Report Type: Spontaneous
  Country: NO (occurrence: NO)
  Receive Date: 20200128
  Receipt Date: 20210707
  Transmission Date: 20211014
  Serious: Yes (Hospitalization, Other)
  Sender: FDA-Public Use
  Company Number: NO-NAPPMUNDI-GBR-2020-0074548

PATIENT
  Sex: Female

DRUGS (18)
  1. OXYNORM [Suspect]
     Active Substance: OXYCODONE HYDROCHLORIDE
     Dosage: UNK UNK, BIW
     Route: 065
  2. OXYNORM [Suspect]
     Active Substance: OXYCODONE HYDROCHLORIDE
     Dosage: 2000 MG, DAILY [SHORT?ACTING CAPSULES]
     Route: 065
  3. OXYNORM [Suspect]
     Active Substance: OXYCODONE HYDROCHLORIDE
     Indication: PAIN
     Dosage: 1480 MG, DAILY
     Route: 065
  4. OXYCONTIN [Suspect]
     Active Substance: OXYCODONE HYDROCHLORIDE
     Dosage: 9000 MG, DAILY
     Route: 065
  5. SOBRIL [Suspect]
     Active Substance: OXAZEPAM
     Indication: PRODUCT USED FOR UNKNOWN INDICATION
     Dosage: 500 MG, DAILY
     Route: 065
  6. OXYNORM [Suspect]
     Active Substance: OXYCODONE HYDROCHLORIDE
     Dosage: 1480 MG, DAILY [SHORT?ACTING CAPSULES]
     Route: 065
  7. OXYCONTIN [Suspect]
     Active Substance: OXYCODONE HYDROCHLORIDE
     Dosage: 820 MG, DAILY
     Route: 065
  8. OXYCONTIN [Suspect]
     Active Substance: OXYCODONE HYDROCHLORIDE
     Dosage: UNK UNK, BIW [DOSE REDUCED BY 10%]
     Route: 065
  9. OXYCONTIN [Suspect]
     Active Substance: OXYCODONE HYDROCHLORIDE
     Dosage: 4920 MG, DAILY
     Route: 065
  10. OXYCONTIN [Suspect]
     Active Substance: OXYCODONE HYDROCHLORIDE
     Indication: PAIN
     Dosage: 2000 MG, DAILY
     Route: 065
  11. OXYCONTIN [Suspect]
     Active Substance: OXYCODONE HYDROCHLORIDE
     Dosage: 820 MG, DAILY
     Route: 065
  12. SOBRIL [Suspect]
     Active Substance: OXAZEPAM
     Dosage: 450 MG, DAILY
     Route: 065
  13. OXYNORM [Suspect]
     Active Substance: OXYCODONE HYDROCHLORIDE
     Dosage: 2000 MG, DAILY
     Route: 065
  14. OXYCONTIN [Suspect]
     Active Substance: OXYCODONE HYDROCHLORIDE
     Dosage: 9000 MG, DAILY
     Route: 065
  15. SOBRIL [Suspect]
     Active Substance: OXAZEPAM
     Indication: PRODUCT USED FOR UNKNOWN INDICATION
     Dosage: 450 MG, DAILY
     Route: 065
  16. SOBRIL [Suspect]
     Active Substance: OXAZEPAM
     Dosage: 170 MG, DAILY
     Route: 065
  17. OXYCONTIN [Suspect]
     Active Substance: OXYCODONE HYDROCHLORIDE
     Dosage: 4920 MG, DAILY
     Route: 065
  18. SOBRIL [Suspect]
     Active Substance: OXAZEPAM
     Dosage: 500 MG, DAILY
     Route: 065

REACTIONS (15)
  - Restlessness [Recovered/Resolved]
  - Incorrect dose administered [Recovered/Resolved]
  - Hyperhidrosis [Unknown]
  - Chills [Recovered/Resolved]
  - Drug level increased [Recovered/Resolved]
  - Fatigue [Unknown]
  - Drug withdrawal syndrome [Recovered/Resolved]
  - Physical disability [Recovered/Resolved]
  - Somnolence [Recovered/Resolved]
  - Constipation [Unknown]
  - Overdose [Unknown]
  - Oedema peripheral [Unknown]
  - Mental disorder [Unknown]
  - Feeling abnormal [Recovered/Resolved]
  - Malaise [Recovered/Resolved]
